FAERS Safety Report 23480940 (Version 1)
Quarter: 2024Q1

REPORT INFORMATION
  Report Type: Spontaneous
  Country: US (occurrence: US)
  Receive Date: 20240205
  Receipt Date: 20240205
  Transmission Date: 20240410
  Serious: Yes (Other)
  Sender: FDA-Public Use
  Company Number: US-TEVA-VS-3150349

PATIENT
  Age: 78 Year
  Sex: Female
  Weight: 64.41 kg

DRUGS (1)
  1. QVAR REDIHALER [Suspect]
     Active Substance: BECLOMETHASONE DIPROPIONATE
     Indication: Asthma
     Dosage: STARTED ABOUT 15 YEARS AGO,2 PUFFS TWICE A DAY
     Route: 065

REACTIONS (4)
  - Paralysis [Unknown]
  - Dyspnoea [Unknown]
  - Asthma [Unknown]
  - Product complaint [Unknown]
